FAERS Safety Report 4785568-8 (Version None)
Quarter: 2005Q4

REPORT INFORMATION
  Report Type: 
  Country: None (occurrence: None)
  Receive Date: 20051003
  Receipt Date: 20050412
  Transmission Date: 20060501
  Serious: Yes (Death)
  Sender: FDA-Public Use
  Company Number: GB-GLAXOSMITHKLINE-B0378442A

PATIENT
  Age: 64 Year
  Sex: Female

DRUGS (9)
  1. AMOXICILLIN [Suspect]
     Route: 065
  2. SALMETEROL + FLUTICASONE [Suspect]
     Dosage: 2PUFF TWICE PER DAY
     Route: 055
  3. SALMETEROL [Suspect]
     Dosage: 5MG PER DAY
     Route: 055
  4. ATROVENT [Suspect]
     Dosage: 2ML PER DAY
     Route: 055
  5. IBUPROFEN [Suspect]
     Dosage: 200MG THREE TIMES PER DAY
     Route: 048
  6. VENTODISKS [Suspect]
     Dosage: 400MCG FOUR TIMES PER DAY
     Route: 065
  7. PREDNISOLONE [Suspect]
     Dosage: 5MG PER DAY
     Route: 048
  8. PHYLLOCONTIN [Suspect]
     Dosage: 225MG TWICE PER DAY
     Route: 065
  9. OXYGEN [Suspect]
     Route: 065

REACTIONS (2)
  - BRONCHOPNEUMONIA [None]
  - EMPHYSEMA [None]
